FAERS Safety Report 5520071-9 (Version None)
Quarter: 2007Q4

REPORT INFORMATION
  Report Type: 
  Country: None (occurrence: None)
  Receive Date: 20071116
  Receipt Date: 20071109
  Transmission Date: 20080405
  Serious: Yes (Hospitalization)
  Sender: FDA-Public Use
  Company Number: NO-SHR-NO-2007-042687

PATIENT
  Age: 45 Year
  Sex: Male
  Weight: 95 kg

DRUGS (1)
  1. MAGNEVIST [Suspect]
     Dosage: 15 ML, 1 DOSE
     Route: 042

REACTIONS (7)
  - BURNING SENSATION [None]
  - DYSPNOEA [None]
  - FOAMING AT MOUTH [None]
  - NASAL CONGESTION [None]
  - RASH [None]
  - SNEEZING [None]
  - SWOLLEN TONGUE [None]
